FAERS Safety Report 6391992-2 (Version None)
Quarter: 2009Q4

REPORT INFORMATION
  Report Type: 
  Country: None (occurrence: None)
  Receive Date: 20091007
  Receipt Date: 20090928
  Transmission Date: 20100525
  Serious: Yes (Hospitalization)
  Sender: FDA-Public Use
  Company Number: B0596070A

PATIENT
  Age: 77 Year
  Sex: Female

DRUGS (3)
  1. VALACYCLOVIR HCL [Suspect]
     Indication: HERPES ZOSTER
     Route: 048
  2. ANALGESIC AGENT [Suspect]
  3. DICLOFENAC SODIUM [Concomitant]
     Indication: HERPES ZOSTER

REACTIONS (9)
  - ALTERED STATE OF CONSCIOUSNESS [None]
  - BLOOD CREATININE INCREASED [None]
  - CALCULUS URETERIC [None]
  - DRUG ABUSE [None]
  - DYSPNOEA [None]
  - ELECTROLYTE IMBALANCE [None]
  - HYDRONEPHROSIS [None]
  - MALAISE [None]
  - RENAL FAILURE ACUTE [None]
